FAERS Safety Report 4745908-2 (Version None)
Quarter: 2005Q3

REPORT INFORMATION
  Report Type: 
  Country: None (occurrence: None)
  Receive Date: 20050816
  Receipt Date: 20050516
  Transmission Date: 20060218
  Serious: Yes (Hospitalization)
  Sender: FDA-Public Use
  Company Number: 2005UW07535

PATIENT
  Age: 68 Year
  Sex: Female
  Weight: 85 kg

DRUGS (11)
  1. CRESTOR [Suspect]
     Indication: BLOOD CHOLESTEROL INCREASED
     Route: 048
     Dates: start: 20040408, end: 20040822
  2. CRESTOR [Suspect]
     Route: 048
     Dates: start: 20040822, end: 20050126
  3. GEMFIBROZIL [Suspect]
     Indication: BLOOD CHOLESTEROL INCREASED
  4. HYZAAR [Suspect]
     Dosage: 100/25 MG ONE Q DAY
  5. ASPIRIN [Concomitant]
     Route: 048
  6. LOPRESSOR [Concomitant]
  7. CAPTOPRIL [Concomitant]
  8. GLYBURIDE [Concomitant]
  9. AVANDIA [Concomitant]
  10. CALCIUM + VITAMIN D [Concomitant]
  11. LEVAQUIN [Concomitant]

REACTIONS (21)
  - ANOREXIA [None]
  - ASTHENIA [None]
  - BLOOD CREATINE PHOSPHOKINASE INCREASED [None]
  - BLOOD PRESSURE SYSTOLIC INCREASED [None]
  - BREATH SOUNDS ABNORMAL [None]
  - CARDIAC ENZYMES INCREASED [None]
  - DEHYDRATION [None]
  - ELECTROCARDIOGRAM ST-T CHANGE [None]
  - HAEMATOCRIT DECREASED [None]
  - HAEMOGLOBIN DECREASED [None]
  - HYPOCHLORAEMIA [None]
  - HYPOKALAEMIA [None]
  - HYPONATRAEMIA [None]
  - HYPOVOLAEMIA [None]
  - INFLUENZA LIKE ILLNESS [None]
  - OEDEMA PERIPHERAL [None]
  - PLEURITIC PAIN [None]
  - RESPIRATORY TRACT INFECTION VIRAL [None]
  - RHABDOMYOLYSIS [None]
  - VENTRICULAR HYPERTROPHY [None]
  - VIRAL INFECTION [None]
